FAERS Safety Report 8443373-5 (Version None)
Quarter: 2012Q2

REPORT INFORMATION
  Report Type: 
  Country: None (occurrence: None)
  Receive Date: 20120618
  Receipt Date: 20120611
  Transmission Date: 20120825
  Serious: Yes (Other)
  Sender: FDA-Public Use
  Company Number: US-BIOGENIDEC-2009BI034021

PATIENT
  Age: 36 Year
  Sex: Female
  Weight: 52 kg

DRUGS (2)
  1. AVONEX [Suspect]
     Indication: MULTIPLE SCLEROSIS
     Route: 030
     Dates: start: 19960601
  2. BACLOFEN [Concomitant]
     Indication: MUSCLE SPASMS
     Route: 048

REACTIONS (9)
  - THYROID DISORDER [None]
  - BLOOD PRESSURE DIASTOLIC INCREASED [None]
  - MUSCULAR WEAKNESS [None]
  - MUSCULOSKELETAL DISORDER [None]
  - RESTLESS LEGS SYNDROME [None]
  - MUSCLE SPASMS [None]
  - STRESS [None]
  - SIMPLE PARTIAL SEIZURES [None]
  - MULTIPLE SCLEROSIS [None]
